FAERS Safety Report 4296643-9 (Version None)
Quarter: 2004Q1

REPORT INFORMATION
  Report Type: 
  Country: None (occurrence: None)
  Receive Date: 20040217
  Receipt Date: 20010309
  Transmission Date: 20041129
  Serious: Yes (Death, Hospitalization)
  Sender: FDA-Public Use
  Company Number: US-ROCHE-256171

PATIENT
  Age: 42 Year
  Sex: Female

DRUGS (27)
  1. DACLIZUMAB [Suspect]
     Route: 042
     Dates: start: 20010118, end: 20010118
  2. DACLIZUMAB [Suspect]
     Route: 042
     Dates: start: 20010131, end: 20010131
  3. MYCOPHENOLATE MOFETIL [Suspect]
     Route: 065
  4. PREDNISONE [Suspect]
     Route: 065
  5. PREDNISONE [Suspect]
     Route: 065
     Dates: start: 20021115
  6. PREDNISONE [Suspect]
     Route: 065
  7. PROGRAF [Suspect]
     Route: 048
  8. PROGRAF [Suspect]
     Route: 048
  9. LOPRESSOR [Concomitant]
     Route: 048
  10. PRAVACHOL [Concomitant]
  11. REGLAN [Concomitant]
     Dosage: UNSPECIFIED DOSE INCREASED TO 15 MG EVERY 6 HOURS ON 28 FEB 2001.
     Route: 048
  12. FLUCONAZOLE [Concomitant]
     Route: 048
  13. ASPIRIN [Concomitant]
     Route: 048
  14. DAPSONE [Concomitant]
     Route: 048
  15. PROCRIT [Concomitant]
     Dosage: UNSPECIFIED DOSE INCREASED ON 7 MAR 2001 TO 6000 UNITS EVERY MONDAY, WEDNESDAY AND FRIDAY.
     Route: 058
  16. SYNTHROID [Concomitant]
     Route: 048
  17. NITROGLYCERIN [Concomitant]
     Indication: CHEST PAIN
     Dosage: EVERY 5 MINUTES UP TO 3 TIMES.
     Route: 060
  18. PREVACID [Concomitant]
     Route: 048
  19. BENAZEPRIL HCL [Concomitant]
  20. DECADRON [Concomitant]
     Route: 048
     Dates: start: 20030115
  21. LIPITOR [Concomitant]
     Route: 048
  22. ISORDIL [Concomitant]
  23. REGLAN [Concomitant]
     Route: 048
  24. DILANTIN [Concomitant]
     Route: 048
  25. IMDUR [Concomitant]
     Route: 048
  26. COMPAZINE [Concomitant]
     Route: 048
  27. HYDROCHLOROTHIAZIDE [Concomitant]
     Dosage: DOSAGE TAKEN AS REQUIRED.
     Route: 048

REACTIONS (18)
  - ALOPECIA [None]
  - ANAEMIA [None]
  - BLINDNESS [None]
  - CYTOMEGALOVIRUS GASTRITIS [None]
  - DERMAL CYST [None]
  - EMBOLISM [None]
  - FAECAL OCCULT BLOOD POSITIVE [None]
  - GLIOBLASTOMA MULTIFORME [None]
  - HEMIPARESIS [None]
  - IMPAIRED GASTRIC EMPTYING [None]
  - NAUSEA [None]
  - OESOPHAGITIS [None]
  - OPTIC NEUROPATHY [None]
  - RADIATION INJURY [None]
  - RETINAL ARTERY OCCLUSION [None]
  - VISUAL FIELD DEFECT [None]
  - VITREOUS HAEMORRHAGE [None]
  - VOMITING [None]
